FAERS Safety Report 4797558-X (Version None)
Quarter: 2005Q3

REPORT INFORMATION
  Report Type: 
  Country: None (occurrence: None)
  Receive Date: 20050929
  Receipt Date: 20050711
  Transmission Date: 20060218
  Serious: No
  Sender: FDA-Public Use
  Company Number: 05P-163-0305350-00

PATIENT
  Age: 61 Year
  Sex: Male

DRUGS (5)
  1. HUMIRA [Suspect]
     Indication: RHEUMATOID ARTHRITIS
     Dosage: 40 MG, 1IN 2 WK, SUBCUTANEOUS
     Route: 058
     Dates: start: 20030101
  2. PREDNISONE TAB [Concomitant]
  3. DOXAZOSIN MESYLATE [Concomitant]
  4. BLOOD PRESSURE MEDICATIONS [Concomitant]
  5. RANITIDINE HYDROCHLORIDE [Concomitant]

REACTIONS (1)
  - RHEUMATOID ARTHRITIS [None]
